FAERS Safety Report 4449525-3 (Version None)
Quarter: 2004Q3

REPORT INFORMATION
  Report Type: 
  Country: None (occurrence: None)
  Receive Date: 20040914
  Receipt Date: 20040616
  Transmission Date: 20050211
  Serious: Yes (Other)
  Sender: FDA-Public Use
  Company Number: 200414645US

PATIENT
  Sex: Female
  Weight: 91 kg

DRUGS (1)
  1. LANTUS [Suspect]
     Dosage: DOSE: UNK
     Dates: start: 20000101

REACTIONS (2)
  - BLOOD GLUCOSE INCREASED [None]
  - LOWER LIMB FRACTURE [None]
